FAERS Safety Report 20650068 (Version 1)
Quarter: 2022Q1

REPORT INFORMATION
  Report Type: Other
  Country: CN (occurrence: CN)
  Receive Date: 20220329
  Receipt Date: 20220329
  Transmission Date: 20220423
  Serious: Yes (Hospitalization)
  Sender: FDA-Public Use
  Company Number: CN-GE HEALTHCARE-2022CSU002090

PATIENT
  Age: 78 Year
  Sex: Male
  Weight: 65 kg

DRUGS (5)
  1. OMNIPAQUE [Suspect]
     Active Substance: IOHEXOL
     Indication: Chest scan
     Dosage: 80 MG, SINGLE
     Route: 041
     Dates: start: 20220312, end: 20220312
  2. OMNIPAQUE [Suspect]
     Active Substance: IOHEXOL
     Indication: Abdomen scan
  3. OMNIPAQUE [Suspect]
     Active Substance: IOHEXOL
     Indication: Hypertension
  4. OMNIPAQUE [Suspect]
     Active Substance: IOHEXOL
     Indication: Chronic gastritis
  5. OMNIPAQUE [Suspect]
     Active Substance: IOHEXOL
     Indication: Arteriosclerosis coronary artery

REACTIONS (6)
  - Breath odour [Recovering/Resolving]
  - Dyspnoea [Recovering/Resolving]
  - Wheezing [Recovering/Resolving]
  - Oedema [Recovering/Resolving]
  - Rash [Recovering/Resolving]
  - Dysgeusia [Recovering/Resolving]

NARRATIVE: CASE EVENT DATE: 20220312
